FAERS Safety Report 19853473 (Version 1)
Quarter: 2021Q3

REPORT INFORMATION
  Report Type: Report from Study
  Country: EG (occurrence: EG)
  Receive Date: 20210919
  Receipt Date: 20210919
  Transmission Date: 20211014
  Serious: Yes (Other)
  Sender: FDA-Public Use
  Company Number: NVSC2021EG207439

PATIENT
  Age: 43 Year
  Sex: Male

DRUGS (8)
  1. ANTODINE [Concomitant]
     Indication: PRODUCT USED FOR UNKNOWN INDICATION
     Dosage: 1 DF, BID
     Route: 065
     Dates: start: 20210724
  2. CORTISONE [Suspect]
     Active Substance: CORTISONE
     Indication: PRODUCT USED FOR UNKNOWN INDICATION
     Dosage: 5 DF, QD
     Route: 065
     Dates: start: 20210724
  3. CORTISONE [Suspect]
     Active Substance: CORTISONE
     Dosage: 0.5 DF, BID
     Route: 065
     Dates: start: 20210803
  4. SODIUM CARBONATE [Concomitant]
     Active Substance: SODIUM CARBONATE
     Indication: PRODUCT USED FOR UNKNOWN INDICATION
     Dosage: 1 DF, QD (STARTED 2OR 3 YRS ANS TOPPED AFTER KIDNEY TRANSPLANT), THE PATIENT STARTED TO TAKE HALF TE
     Route: 065
  5. ADPORT [Suspect]
     Active Substance: TACROLIMUS
     Indication: PROPHYLAXIS AGAINST TRANSPLANT REJECTION
     Dosage: 2 DF, BID (MORNING AND NIGHT)EVERY 12 HOURS) (STRENGTH 1MG)
     Route: 065
     Dates: start: 20210724
  6. MYFORTIC [Suspect]
     Active Substance: MYCOPHENOLATE SODIUM
     Dosage: 4 DF, BID (WHEN 360 MG WAS UNAVAILABLE USED 180 MG)
     Route: 065
  7. MYFORTIC [Suspect]
     Active Substance: MYCOPHENOLATE SODIUM
     Indication: PROPHYLAXIS AGAINST TRANSPLANT REJECTION
     Dosage: 2 DF, BID (MORNING AND NIGHT STRENGTH: 360MG)
     Route: 065
     Dates: start: 20210724
  8. ADPORT [Suspect]
     Active Substance: TACROLIMUS
     Dosage: 1 DF, BID (MORNING AND NIGHT)EVERY 12 HOURS) (STRENGTH (0.5 MG)
     Route: 065

REACTIONS (3)
  - Haemoglobin decreased [Recovered/Resolved]
  - Blood urea increased [Not Recovered/Not Resolved]
  - Blood creatinine increased [Recovering/Resolving]

NARRATIVE: CASE EVENT DATE: 20210724
